FAERS Safety Report 9686763 (Version 4)
Quarter: 2014Q1

REPORT INFORMATION
  Report Type: Spontaneous
  Country: FR (occurrence: FR)
  Receive Date: 20131113
  Receipt Date: 20140203
  Transmission Date: 20141002
  Serious: Yes (Hospitalization)
  Sender: FDA-Public Use
  Company Number: FR-UCBSA-102893

PATIENT
  Age: 73 Year
  Sex: Female
  Weight: 54 kg

DRUGS (7)
  1. CIMZIA [Suspect]
     Indication: RHEUMATOID ARTHRITIS
     Dosage: 3 COURSES
     Route: 058
     Dates: start: 201308, end: 20131016
  2. SPECIAFOLDINE [Concomitant]
     Indication: RHEUMATOID ARTHRITIS
     Route: 048
  3. EUPANTOL [Concomitant]
     Indication: GASTRITIS
     Route: 048
     Dates: start: 2010
  4. PRAVASTATIN [Concomitant]
     Indication: HYPERCHOLESTEROLAEMIA
     Route: 048
     Dates: start: 2010
  5. IMETH [Concomitant]
     Indication: RHEUMATOID ARTHRITIS
     Dosage: DOSE: 15 MG WEEKLY
     Route: 048
     Dates: start: 201008
  6. IMETH [Concomitant]
     Indication: RHEUMATOID ARTHRITIS
     Dosage: DOSE: 15 MG WEEKLY
     Route: 048
     Dates: start: 201008
  7. BISOPROLOL [Concomitant]
     Indication: HYPERTENSION
     Route: 048
     Dates: start: 2010

REACTIONS (2)
  - Psoriasis [Not Recovered/Not Resolved]
  - Submaxillary gland enlargement [Not Recovered/Not Resolved]
